FAERS Safety Report 15216351 (Version 2)
Quarter: 2018Q3

REPORT INFORMATION
  Report Type: Report from Study
  Country: SV (occurrence: SV)
  Receive Date: 20180730
  Receipt Date: 20180820
  Transmission Date: 20181010
  Serious: Yes (Death, Hospitalization, Other)
  Sender: FDA-Public Use
  Company Number: PHHY2018SV057968

PATIENT
  Age: 23 Year
  Sex: Male

DRUGS (2)
  1. CIPROFLOXACIN. [Concomitant]
     Active Substance: CIPROFLOXACIN
     Indication: PRODUCT USED FOR UNKNOWN INDICATION
     Dosage: 0.4 G, UNK
     Route: 042
  2. GLIVEC [Suspect]
     Active Substance: IMATINIB MESYLATE
     Indication: CHRONIC MYELOID LEUKAEMIA
     Dosage: 400 MG, QD
     Route: 048
     Dates: start: 201511, end: 201712

REACTIONS (5)
  - Bone marrow failure [Unknown]
  - Blast cell crisis [Unknown]
  - Acute respiratory failure [Fatal]
  - Pneumonia [Fatal]
  - Cardiac arrest [Unknown]

NARRATIVE: CASE EVENT DATE: 201712
